FAERS Safety Report 12155995 (Version 8)
Quarter: 2016Q2

REPORT INFORMATION
  Report Type: Spontaneous
  Country: JP (occurrence: JP)
  Receive Date: 20160307
  Receipt Date: 20160609
  Transmission Date: 20160815
  Serious: Yes (Other)
  Sender: FDA-Public Use
  Company Number: PHJP2016JP004375

PATIENT
  Age: 69 Year
  Sex: Female

DRUGS (7)
  1. COSENTYX [Suspect]
     Active Substance: SECUKINUMAB
     Indication: PSORIASIS
     Dosage: 150 MG, QW
     Route: 058
     Dates: start: 20160128
  2. CONIEL [Concomitant]
     Active Substance: BENIDIPINE HYDROCHLORIDE
     Indication: HYPERTENSION
     Dosage: 1 DF, QD
     Route: 048
     Dates: start: 20120426
  3. URSO [Concomitant]
     Active Substance: URSODIOL
     Indication: HEPATIC FUNCTION ABNORMAL
     Dosage: 1 DF, BID
     Route: 048
     Dates: start: 20120927
  4. COSENTYX [Suspect]
     Active Substance: SECUKINUMAB
     Dosage: 150 MG, QW
     Route: 058
     Dates: start: 20160225
  5. COSENTYX [Suspect]
     Active Substance: SECUKINUMAB
     Dosage: 150 UNK, 4W
     Route: 058
     Dates: start: 20160324
  6. URINORM//BENZBROMARONE [Concomitant]
     Indication: HYPERURICAEMIA
     Dosage: 1 DF, BID
     Route: 048
     Dates: start: 20150806
  7. COSENTYX [Suspect]
     Active Substance: SECUKINUMAB
     Dosage: 150 MG, QW
     Route: 058
     Dates: start: 20160218

REACTIONS (7)
  - Chest X-ray abnormal [Unknown]
  - Blood beta-D-glucan increased [Unknown]
  - Computerised tomogram abnormal [Unknown]
  - Rash [Unknown]
  - Cystitis [Recovered/Resolved]
  - Erythema [Unknown]
  - Drug eruption [Recovering/Resolving]

NARRATIVE: CASE EVENT DATE: 20160222
